FAERS Safety Report 8327924-7 (Version None)
Quarter: 2012Q2

REPORT INFORMATION
  Report Type: 
  Country: None (occurrence: None)
  Receive Date: 20120502
  Receipt Date: 20120424
  Transmission Date: 20120825
  Serious: Yes (Other)
  Sender: FDA-Public Use
  Company Number: DE-US-EMD SERONO, INC.-7120342

PATIENT
  Sex: Female
  Weight: 123 kg

DRUGS (3)
  1. IBUPROFEN [Concomitant]
     Indication: PAIN
     Route: 048
  2. CITALOPRAM [Concomitant]
     Indication: DEPRESSION
     Route: 048
  3. REBIF [Suspect]
     Indication: MULTIPLE SCLEROSIS
     Route: 058
     Dates: start: 20110719

REACTIONS (2)
  - MUSCULAR WEAKNESS [None]
  - POLYNEUROPATHY [None]
